FAERS Safety Report 15508608 (Version 1)
Quarter: 2018Q4

REPORT INFORMATION
  Report Type: Spontaneous
  Country: CA (occurrence: CA)
  Receive Date: 20181016
  Receipt Date: 20181016
  Transmission Date: 20190205
  Serious: Yes (Other)
  Sender: FDA-Public Use
  Company Number: PHHY2018CA126908

PATIENT
  Age: 13 Year
  Sex: Male
  Weight: 57 kg

DRUGS (2)
  1. RIZATRIPTAN SANDOZ [Suspect]
     Active Substance: RIZATRIPTAN BENZOATE
     Indication: MIGRAINE PROPHYLAXIS
     Dosage: 5.0 MG, BID
     Route: 048
  2. RIZATRIPTAN ACTAVIS [Suspect]
     Active Substance: RIZATRIPTAN BENZOATE
     Indication: MIGRAINE PROPHYLAXIS
     Dosage: 5.0 MG, BID
     Route: 048

REACTIONS (2)
  - Nausea [Recovered/Resolved]
  - Migraine [Recovered/Resolved]
